FAERS Safety Report 8960197 (Version 1)
Quarter: 2012Q4

REPORT INFORMATION
  Report Type: 
  Country: CA (occurrence: CA)
  Receive Date: 20121212
  Receipt Date: 20121212
  Transmission Date: 20130627
  Serious: Yes (Other)
  Sender: FDA-Public Use
  Company Number: PHHY2012CA113105

PATIENT
  Age: 84 Year
  Sex: Female

DRUGS (1)
  1. EXELON PATCH [Suspect]
     Indication: DEMENTIA ALZHEIMER^S TYPE
     Dosage: 9.5 mg, daily
     Route: 062
     Dates: start: 20120507, end: 20121121

REACTIONS (7)
  - Personality disorder [Unknown]
  - Anger [Unknown]
  - Depression [Unknown]
  - Aphagia [Unknown]
  - Weight decreased [Unknown]
  - Abdominal pain upper [Unknown]
  - Application site dermatitis [Unknown]
